FAERS Safety Report 22954680 (Version 2)
Quarter: 2024Q1

REPORT INFORMATION
  Report Type: Spontaneous
  Country: US (occurrence: US)
  Receive Date: 20230918
  Receipt Date: 20240215
  Transmission Date: 20240410
  Serious: No
  Sender: FDA-Public Use
  Company Number: US-VERTEX PHARMACEUTICALS-2023-007739

PATIENT
  Age: 34 Year
  Sex: Female

DRUGS (1)
  1. TRIKAFTA [Suspect]
     Active Substance: ELEXACAFTOR\IVACAFTOR\TEZACAFTOR
     Indication: Cystic fibrosis
     Dosage: UNK FREQUENCY
     Route: 048
     Dates: start: 20191114

REACTIONS (11)
  - Panic attack [Recovering/Resolving]
  - Irritability [Recovering/Resolving]
  - Anger [Recovering/Resolving]
  - Migraine [Recovering/Resolving]
  - Illness [Unknown]
  - Eye irritation [Not Recovered/Not Resolved]
  - Malaise [Recovering/Resolving]
  - Nasal disorder [Recovering/Resolving]
  - Sinus disorder [Recovering/Resolving]
  - Fatigue [Not Recovered/Not Resolved]
  - Headache [Not Recovered/Not Resolved]

NARRATIVE: CASE EVENT DATE: 20191101
